FAERS Safety Report 23187925 (Version 2)
Quarter: 2023Q4

REPORT INFORMATION
  Report Type: Other
  Country: US (occurrence: US)
  Receive Date: 20231115
  Receipt Date: 20231116
  Transmission Date: 20240110
  Serious: No
  Sender: FDA-Public Use
  Company Number: US-TRAVERE-2023TVT00598

PATIENT
  Sex: Female

DRUGS (6)
  1. FILSPARI [Suspect]
     Active Substance: SPARSENTAN
     Indication: IgA nephropathy
     Dosage: ON DAYS 1 TO 14
     Route: 048
     Dates: start: 202309
  2. FILSPARI [Suspect]
     Active Substance: SPARSENTAN
     Dosage: ON DAYS 15 THROUGH 30
     Route: 048
     Dates: start: 20231018
  3. FILSPARI [Suspect]
     Active Substance: SPARSENTAN
     Dosage: ON DAYS 15 THROUGH 30
     Route: 048
  4. TACROLIMUS [Suspect]
     Active Substance: TACROLIMUS
  5. YAZ [Concomitant]
     Active Substance: DROSPIRENONE\ETHINYL ESTRADIOL
  6. PREDNISONE [Concomitant]
     Active Substance: PREDNISONE

REACTIONS (3)
  - Tremor [Unknown]
  - Muscle spasms [Unknown]
  - Extra dose administered [Unknown]
